FAERS Safety Report 4680037-8 (Version None)
Quarter: 2005Q2

REPORT INFORMATION
  Report Type: 
  Country: None (occurrence: None)
  Receive Date: 20050602
  Receipt Date: 20050523
  Transmission Date: 20051028
  Serious: Yes (Other)
  Sender: FDA-Public Use
  Company Number: CA-GLAXOSMITHKLINE-B0382216A

PATIENT

DRUGS (1)
  1. PAROXETINE HCL [Suspect]

REACTIONS (5)
  - DRUG EXPOSURE DURING PREGNANCY [None]
  - DRUG LEVEL CHANGED [None]
  - DYSKINESIA [None]
  - HYPERTONIA [None]
  - OPISTHOTONUS [None]
